FAERS Safety Report 24296337 (Version 6)
Quarter: 2024Q4

REPORT INFORMATION
  Report Type: Spontaneous
  Country: JP (occurrence: JP)
  Receive Date: 20240909
  Receipt Date: 20241209
  Transmission Date: 20250115
  Serious: Yes (Hospitalization, Disabling, Other)
  Sender: AMGEN
  Company Number: JP-KYOWAKIRIN-2024KK019709

PATIENT
  Age: 58 Year
  Sex: Female

DRUGS (11)
  1. PEGFILGRASTIM [Suspect]
     Active Substance: PEGFILGRASTIM
     Indication: Colony stimulating factor therapy
     Dosage: 3.6 MG, SINGLE
     Route: 058
     Dates: start: 20240814, end: 20240814
  2. EPIRUBICIN HYDROCHLORIDE [Suspect]
     Active Substance: EPIRUBICIN HYDROCHLORIDE
     Indication: Breast cancer
     Dosage: 90 MG/M2, 1X/2 WEEKS
     Route: 041
     Dates: start: 20240813, end: 20240813
  3. CYCLOPHOSPHAMIDE [Suspect]
     Active Substance: CYCLOPHOSPHAMIDE
     Indication: Breast cancer
     Dosage: 600 MG/M2, 1X/2 WEEKS
     Route: 041
     Dates: start: 20240813, end: 20240813
  4. DOCETAXEL [Concomitant]
     Active Substance: DOCETAXEL
     Indication: Breast cancer
     Dosage: 75 MG/M2, 1X/3 WEEKS, 4 TIMES IN TOTAL
     Route: 041
     Dates: start: 20240521, end: 20240723
  5. PHESGO [Concomitant]
     Active Substance: HYALURONIDASE-ZZXF\PERTUZUMAB\TRASTUZUMAB
     Indication: Breast cancer
     Dosage: IN-MA, 1X/3 WEEKS, 4 TIMES IN TOTAL
     Route: 058
     Dates: start: 20240521, end: 20240723
  6. OLANZAPINE [Concomitant]
     Active Substance: OLANZAPINE
     Indication: Chemotherapy side effect prophylaxis
     Dosage: 5 MG, SINGLE
     Route: 048
     Dates: start: 20240813, end: 20240818
  7. DEXAMETHASONE SODIUM PHOSPHATE [Concomitant]
     Active Substance: DEXAMETHASONE SODIUM PHOSPHATE
     Indication: Chemotherapy side effect prophylaxis
     Dosage: 6.6 MG, 1X/3 WEEKS, 4 TIMES IN TOTAL
     Route: 041
     Dates: start: 20240521, end: 20240723
  8. DEXAMETHASONE SODIUM PHOSPHATE [Concomitant]
     Active Substance: DEXAMETHASONE SODIUM PHOSPHATE
     Indication: Prophylaxis of nausea and vomiting
     Dosage: 9.9 MG, SINGLE
     Route: 041
     Dates: start: 20240813, end: 20240813
  9. DECADRON [Concomitant]
     Active Substance: DEXAMETHASONE
     Indication: Chemotherapy side effect prophylaxis
     Dosage: 4 MG, TWICE (WITHIN 3 DAYS OF COURSE)
     Route: 048
     Dates: start: 20240522, end: 20240816
  10. FOSNETUPITANT CHLORIDE HYDROCHLORIDE [Concomitant]
     Active Substance: FOSNETUPITANT CHLORIDE HYDROCHLORIDE
     Indication: Prophylaxis of nausea and vomiting
     Dosage: 235 MG, SINGLE
     Route: 041
     Dates: start: 20240813, end: 20240813
  11. PALONOSETRON [Concomitant]
     Active Substance: PALONOSETRON
     Indication: Prophylaxis of nausea and vomiting
     Dosage: 0.75 MG, SINGLE
     Route: 041
     Dates: start: 20240813, end: 20240813

REACTIONS (7)
  - Necrotising fasciitis [Recovered/Resolved with Sequelae]
  - Anaemia [Recovering/Resolving]
  - Febrile neutropenia [Recovered/Resolved]
  - Sepsis [Recovered/Resolved]
  - Thrombocytopenia [Recovering/Resolving]
  - Colony stimulating factor therapy [Unknown]
  - Drug ineffective [Unknown]

NARRATIVE: CASE EVENT DATE: 20240820
